FAERS Safety Report 10748980 (Version 3)
Quarter: 2016Q1

REPORT INFORMATION
  Report Type: Spontaneous
  Country: AR (occurrence: AR)
  Receive Date: 20150129
  Receipt Date: 20160318
  Transmission Date: 20160525
  Serious: Yes (Hospitalization, Other)
  Sender: FDA-Public Use
  Company Number: AR-AMGEN-ARGSP2015007581

PATIENT
  Age: 62 Year
  Sex: Female

DRUGS (5)
  1. ARTRAIT                            /00113801/ [Concomitant]
     Active Substance: METHOTREXATE SODIUM
     Dosage: UNK
  2. FOLIC ACID. [Concomitant]
     Active Substance: FOLIC ACID
     Dosage: UNK
  3. CALCIUM [Concomitant]
     Active Substance: CALCIUM
     Dosage: UNK
  4. METICORTEN [Concomitant]
     Active Substance: PREDNISONE
     Dosage: UNK
  5. ENBREL [Suspect]
     Active Substance: ETANERCEPT
     Indication: RHEUMATOID ARTHRITIS
     Dosage: 50 MG, WEEKLY
     Route: 065
     Dates: start: 20060104

REACTIONS (2)
  - Joint injury [Not Recovered/Not Resolved]
  - Arthritis bacterial [Not Recovered/Not Resolved]

NARRATIVE: CASE EVENT DATE: 201601
